FAERS Safety Report 9370384 (Version 1)
Quarter: 2013Q2

REPORT INFORMATION
  Report Type: Other
  Country: GB (occurrence: GB)
  Receive Date: 20130626
  Receipt Date: 20130626
  Transmission Date: 20140414
  Serious: Yes (Other)
  Sender: FDA-Public Use
  Company Number: GB-WATSON-2013-11062

PATIENT
  Age: 59 Year
  Sex: Female

DRUGS (2)
  1. TERBINAFINE HYDROCHLORIDE (UNKNOWN) [Suspect]
     Indication: ONYCHOMYCOSIS
     Dosage: 1 DF, DAILY, DID NOT STOP BECAUSE OF SIDE EFFECTS. PATIENT WEANED THEMSELF OFF THE DRUG
     Route: 065
     Dates: start: 201203, end: 201206
  2. BECLOMETHASONE                     /00212602/ [Concomitant]
     Indication: ASTHMA PROPHYLAXIS
     Dosage: UNK
     Route: 065

REACTIONS (3)
  - Pain in extremity [Not Recovered/Not Resolved]
  - Paraesthesia [Not Recovered/Not Resolved]
  - Activities of daily living impaired [Not Recovered/Not Resolved]
